FAERS Safety Report 7199834-2 (Version None)
Quarter: 2010Q4

REPORT INFORMATION
  Report Type: 
  Country: None (occurrence: None)
  Receive Date: 20101228
  Receipt Date: 20101220
  Transmission Date: 20110411
  Serious: Yes (Life-Threatening, Hospitalization)
  Sender: FDA-Public Use
  Company Number: DE-ROCHE-749960

PATIENT
  Sex: Female
  Weight: 69 kg

DRUGS (2)
  1. ACTEMRA [Suspect]
     Route: 042
     Dates: start: 20090315, end: 20090922
  2. PREDNISOLONE [Concomitant]
     Route: 048

REACTIONS (2)
  - ACUTE RESPIRATORY DISTRESS SYNDROME [None]
  - PNEUMONIA [None]
